FAERS Safety Report 6335425-0 (Version None)
Quarter: 2009Q3

REPORT INFORMATION
  Report Type: 
  Country: None (occurrence: None)
  Receive Date: 20090831
  Receipt Date: 20090824
  Transmission Date: 20100115
  Serious: Yes (Other)
  Sender: FDA-Public Use
  Company Number: PHEH2009US10059

PATIENT
  Sex: Female

DRUGS (2)
  1. RECLAST [Suspect]
  2. FUROSEMIDE [Concomitant]

REACTIONS (3)
  - BACK PAIN [None]
  - CARDIAC FAILURE CONGESTIVE [None]
  - JOINT STIFFNESS [None]
